FAERS Safety Report 6673780-2 (Version None)
Quarter: 2010Q2

REPORT INFORMATION
  Report Type: 
  Country: None (occurrence: None)
  Receive Date: 20100407
  Receipt Date: 20100329
  Transmission Date: 20101027
  Serious: Yes (Other)
  Sender: FDA-Public Use
  Company Number: 2010SP012782

PATIENT
  Sex: Female

DRUGS (1)
  1. IMPLANON [Suspect]
     Indication: CONTRACEPTION
     Dosage: 1 DF; SC
     Route: 058

REACTIONS (3)
  - IMPLANT SITE ATROPHY [None]
  - MUSCLE ATROPHY [None]
  - SKIN ATROPHY [None]
